FAERS Safety Report 22226557 (Version 1)
Quarter: 2023Q2

REPORT INFORMATION
  Report Type: Spontaneous
  Country: US (occurrence: US)
  Receive Date: 20230419
  Receipt Date: 20230419
  Transmission Date: 20230721
  Serious: Yes (Hospitalization, Other)
  Sender: FDA-Public Use
  Company Number: US-CIPLA LTD.-2023US02021

PATIENT

DRUGS (11)
  1. GABAPENTIN [Suspect]
     Active Substance: GABAPENTIN
     Indication: Multiple sclerosis
     Dosage: 300 MILLIGRAM, TID
     Route: 065
  2. GABAPENTIN [Suspect]
     Active Substance: GABAPENTIN
     Dosage: 600 MILLIGRAM, TID (THREE TIMES A DAY)
     Route: 065
  3. GABAPENTIN [Suspect]
     Active Substance: GABAPENTIN
     Dosage: UNK, DOSE DCREASED
     Route: 065
  4. BACLOFEN [Suspect]
     Active Substance: BACLOFEN
     Indication: Multiple sclerosis
     Dosage: 20 MILLIGRAM, TID
     Route: 065
  5. BACLOFEN [Suspect]
     Active Substance: BACLOFEN
     Dosage: 40 MILLIGRAM, TID (THREE TIMES A DAY)
     Route: 065
  6. BACLOFEN [Suspect]
     Active Substance: BACLOFEN
     Dosage: UNK, DOSE DECREASED
     Route: 065
  7. TIAGABINE [Suspect]
     Active Substance: TIAGABINE
     Indication: Multiple sclerosis
     Dosage: 16 MG, DAILY DOSES
     Route: 065
  8. TIAGABINE [Suspect]
     Active Substance: TIAGABINE
     Dosage: UNK, TAPERED OFF
     Route: 065
  9. DALFAMPRIDINE [Concomitant]
     Active Substance: DALFAMPRIDINE
     Indication: Multiple sclerosis
     Dosage: 20 MG, DAILY DOSES
     Route: 065
  10. PROPRANOLOL [Concomitant]
     Active Substance: PROPRANOLOL HYDROCHLORIDE
     Indication: Multiple sclerosis
     Dosage: 120 MG, DAILY DOSES
     Route: 065
  11. TERIFLUNOMIDE [Concomitant]
     Active Substance: TERIFLUNOMIDE
     Indication: Multiple sclerosis
     Dosage: UNK
     Route: 065

REACTIONS (2)
  - Myoclonus [Recovered/Resolved]
  - Encephalopathy [Recovering/Resolving]
